FAERS Safety Report 7382514-8 (Version None)
Quarter: 2011Q1

REPORT INFORMATION
  Report Type: 
  Country: None (occurrence: None)
  Receive Date: 20110329
  Receipt Date: 20110321
  Transmission Date: 20110831
  Serious: Yes (Hospitalization)
  Sender: FDA-Public Use
  Company Number: US-BAYER-2011-025337

PATIENT
  Sex: Male

DRUGS (3)
  1. NEXAVAR [Suspect]
     Dosage: 200 MG EVERY THREE DAYS
     Route: 048
     Dates: start: 20110301
  2. NEXAVAR [Suspect]
     Indication: HEPATIC NEOPLASM MALIGNANT
     Dosage: 200 MG, EVERY OTHER DAY
     Route: 048
     Dates: start: 20110101, end: 20110101
  3. NEXAVAR [Suspect]
     Dosage: 200 MG, EVERY THREE DAYS
     Route: 048
     Dates: start: 20110101, end: 20110302

REACTIONS (6)
  - PALMAR-PLANTAR ERYTHRODYSAESTHESIA SYNDROME [None]
  - VOMITING [None]
  - PALPITATIONS [None]
  - ASTHENIA [None]
  - FATIGUE [None]
  - CHEST PAIN [None]
